FAERS Safety Report 7804495-2 (Version None)
Quarter: 2011Q4

REPORT INFORMATION
  Report Type: 
  Country: None (occurrence: None)
  Receive Date: 20111010
  Receipt Date: 20110927
  Transmission Date: 20120403
  Serious: Yes (Other)
  Sender: FDA-Public Use
  Company Number: PHHY2011US63984

PATIENT
  Sex: Female
  Weight: 193 kg

DRUGS (5)
  1. NOVOLOG [Concomitant]
     Dosage: UNK UKN, UNK
     Route: 065
  2. PRAVASTATIN [Concomitant]
     Indication: BLOOD PRESSURE
     Dosage: 1 DF (320/12.5) QD
     Route: 065
  3. DIOVAN HCT [Suspect]
     Indication: HYPERTENSION
     Dosage: 1 DF X 320/12.5 MG, QD
     Dates: start: 20010101
  4. LANTUS [Concomitant]
     Dosage: UNK UKN, UNK
     Route: 065
  5. AMLODIPINE [Concomitant]
     Dosage: UNK UKN, UNK
     Route: 065

REACTIONS (1)
  - DIABETES MELLITUS [None]
